FAERS Safety Report 14506179 (Version 1)
Quarter: 2018Q1

REPORT INFORMATION
  Report Type: Spontaneous
  Country: GB (occurrence: GB)
  Receive Date: 20180208
  Receipt Date: 20180208
  Transmission Date: 20180509
  Serious: Yes (Disabling)
  Sender: FDA-Public Use
  Company Number: GB-ASTRAZENECA-2018SE12924

PATIENT
  Age: 69 Year
  Sex: Female

DRUGS (14)
  1. PARACETAMOL [Concomitant]
     Active Substance: ACETAMINOPHEN
  2. CETIRIZINE [Concomitant]
     Active Substance: CETIRIZINE HYDROCHLORIDE
  3. METOCLOPRAMIDE. [Concomitant]
     Active Substance: METOCLOPRAMIDE
  4. PREGABALIN. [Concomitant]
     Active Substance: PREGABALIN
     Route: 048
  5. OMEPRAZOLE. [Suspect]
     Active Substance: OMEPRAZOLE
     Dosage: 40.0MG UNKNOWN
     Route: 048
  6. OXYCODONE [Suspect]
     Active Substance: OXYCODONE
     Dosage: 5 MILLIGRAMS, INTERMITTENT UP TO SIX TIMES DAILY
     Route: 048
  7. KETOCONAZOLE. [Concomitant]
     Active Substance: KETOCONAZOLE
  8. CASSIA [Concomitant]
  9. CHLORPROMAZINE. [Concomitant]
     Active Substance: CHLORPROMAZINE
  10. NAPROXEN. [Suspect]
     Active Substance: NAPROXEN
     Route: 048
  11. BISACODYL. [Concomitant]
     Active Substance: BISACODYL
  12. DIAZEPAM. [Concomitant]
     Active Substance: DIAZEPAM
  13. TRAMADOL. [Concomitant]
     Active Substance: TRAMADOL
  14. CALCITRIOL. [Concomitant]
     Active Substance: CALCITRIOL
     Route: 061

REACTIONS (1)
  - Mouth ulceration [Not Recovered/Not Resolved]
